FAERS Safety Report 9504231 (Version 1)
Quarter: 2013Q3

REPORT INFORMATION
  Report Type: Spontaneous
  Country: US (occurrence: US)
  Receive Date: 20130906
  Receipt Date: 20130906
  Transmission Date: 20140515
  Serious: Yes (Death)
  Sender: FDA-Public Use
  Company Number: US-GLAXOSMITHKLINE-A1040484A

PATIENT
  Age: 75 Year
  Sex: Male

DRUGS (8)
  1. VOTRIENT [Suspect]
     Indication: RENAL CANCER
     Dosage: 800MG PER DAY
     Route: 048
     Dates: start: 20130510, end: 20130821
  2. LEVOTHYROXINE [Concomitant]
  3. ATENOLOL [Concomitant]
  4. HYDROCODONE + IBUPROFEN [Concomitant]
  5. MORPHINE [Concomitant]
  6. BENZONATATE [Concomitant]
  7. PROMETHAZINE/CODEINE [Concomitant]
  8. GLYBURIDE [Concomitant]

REACTIONS (1)
  - Death [Fatal]
